FAERS Safety Report 4720036-0 (Version None)
Quarter: 2005Q3

REPORT INFORMATION
  Report Type: 
  Country: None (occurrence: None)
  Receive Date: 20050721
  Receipt Date: 20040323
  Transmission Date: 20060218
  Serious: No
  Sender: FDA-Public Use
  Company Number: US-GLAXOSMITHKLINE-A0504073A

PATIENT
  Age: 66 Year
  Sex: Male

DRUGS (6)
  1. IMITREX [Suspect]
     Indication: MIGRAINE
     Dosage: 100MG AS REQUIRED
     Route: 048
     Dates: start: 19920101
  2. DEPAKOTE [Concomitant]
  3. AMITRIPTYLINE HCL [Concomitant]
  4. TRANXENE [Concomitant]
  5. PAXIL [Concomitant]
  6. VERPAMIL [Concomitant]

REACTIONS (1)
  - DRUG INEFFECTIVE [None]
